FAERS Safety Report 5549837-6 (Version None)
Quarter: 2007Q4

REPORT INFORMATION
  Report Type: 
  Country: None (occurrence: None)
  Receive Date: 20071207
  Receipt Date: 20071207
  Transmission Date: 20080405
  Serious: Yes (Death)
  Sender: FDA-Public Use
  Company Number: None

PATIENT
  Age: 24 Year
  Sex: Male
  Weight: 68.0396 kg

DRUGS (2)
  1. METHADONE HCL [Suspect]
  2. COCAINE [Concomitant]

REACTIONS (1)
  - SELF-MEDICATION [None]
